FAERS Safety Report 12164411 (Version 7)
Quarter: 2019Q1

REPORT INFORMATION
  Report Type: Spontaneous
  Country: US (occurrence: US)
  Receive Date: 20160309
  Receipt Date: 20190108
  Transmission Date: 20190417
  Serious: No
  Sender: FDA-Public Use
  Company Number: US-PFIZER INC-2016139603

PATIENT
  Age: 72 Year
  Sex: Male

DRUGS (3)
  1. INSPRA [Suspect]
     Active Substance: EPLERENONE
     Indication: DIABETES MELLITUS
  2. INSPRA [Suspect]
     Active Substance: EPLERENONE
     Indication: ADRENAL DISORDER
     Dosage: TAKE ONE (1) BY MOUTH THREE TIMES DAILY
     Route: 048
  3. INSPRA [Suspect]
     Active Substance: EPLERENONE
     Indication: HYPERALDOSTERONISM
     Dosage: 50 MG, UNK
     Dates: start: 20181105, end: 20181130

REACTIONS (10)
  - Overdose [Unknown]
  - Blood potassium abnormal [Unknown]
  - Malaise [Unknown]
  - Emotional disorder [Unknown]
  - Asthenia [Unknown]
  - Fatigue [Unknown]
  - Anxiety [Unknown]
  - Vision blurred [Unknown]
  - Insomnia [Unknown]
  - Hypertension [Unknown]
